FAERS Safety Report 10357513 (Version 2)
Quarter: 2014Q3

REPORT INFORMATION
  Report Type: Spontaneous
  Country: JP (occurrence: JP)
  Receive Date: 20140801
  Receipt Date: 20140813
  Transmission Date: 20150326
  Serious: Yes (Death, Other)
  Sender: FDA-Public Use
  Company Number: JP-009507513-1408JPN000129

PATIENT
  Age: 73 Year
  Sex: Male
  Weight: 46 kg

DRUGS (6)
  1. METGLUCO [Suspect]
     Active Substance: METFORMIN HYDROCHLORIDE
     Indication: DIABETES MELLITUS
     Dosage: 250 MG
     Route: 048
     Dates: start: 20131220, end: 20131222
  2. SUINY [Concomitant]
     Indication: DIABETES MELLITUS
     Dosage: 100 MG, 2 PER DAY
     Route: 048
     Dates: start: 20140513, end: 201406
  3. AMARYL [Suspect]
     Active Substance: GLIMEPIRIDE
     Indication: DIABETES MELLITUS
     Dosage: 1 MG, 1 PER DAY
     Route: 048
     Dates: start: 20140105, end: 20140414
  4. METGLUCO [Suspect]
     Active Substance: METFORMIN HYDROCHLORIDE
     Dosage: 250 MG, BID
     Route: 048
     Dates: start: 20131223, end: 20140529
  5. AMARYL [Suspect]
     Active Substance: GLIMEPIRIDE
     Dosage: 2 MG, QD
     Route: 048
     Dates: start: 20140415, end: 20140529
  6. JANUVIA [Suspect]
     Active Substance: SITAGLIPTIN PHOSPHATE
     Indication: DIABETES MELLITUS
     Dosage: 50 MG, ONCE A DAY
     Route: 048
     Dates: start: 20131228, end: 20140529

REACTIONS (2)
  - Drug effect incomplete [Unknown]
  - Pancreatic carcinoma [Fatal]

NARRATIVE: CASE EVENT DATE: 2014
